FAERS Safety Report 8856219 (Version 1)
Quarter: 2012Q4

REPORT INFORMATION
  Report Type: Spontaneous
  Country: US (occurrence: None)
  Receive Date: 20121023
  Receipt Date: 20121023
  Transmission Date: 20130627
  Serious: Yes (Other)
  Sender: FDA-Public Use
  Company Number: None

PATIENT
  Age: 21 Year
  Sex: Male
  Weight: 63.5 kg

DRUGS (2)
  1. SEROQUEL [Suspect]
     Indication: DEVELOPMENTAL DELAY
     Dosage: 25MG 2 AM + 3 PM
  2. SEROQUEL [Suspect]
     Indication: SEIZURES
     Dosage: 25MG 2 AM + 3 PM

REACTIONS (1)
  - Skin discolouration [None]
